FAERS Safety Report 8907854 (Version 2)
Quarter: 2012Q4

REPORT INFORMATION
  Report Type: 
  Country: AU (occurrence: AU)
  Receive Date: 20121114
  Receipt Date: 20121203
  Transmission Date: 20130627
  Serious: Yes (Other)
  Sender: FDA-Public Use
  Company Number: PHHY2012AU104344

PATIENT
  Age: 79 Year
  Sex: Male

DRUGS (4)
  1. ACLASTA [Suspect]
     Indication: OSTEOPOROSIS
     Dosage: 5 mg/100 ml, yearly
     Route: 042
     Dates: start: 20111117
  2. ACLASTA [Suspect]
     Dosage: 5 mg/100 ml, yearly
     Route: 042
     Dates: start: 20121016
  3. CALTRATE + D                       /00944201/ [Concomitant]
     Indication: OSTEOPOROSIS
     Dosage: 1500 mg, UNK
     Route: 048
     Dates: start: 20120727
  4. MOBIC [Concomitant]
     Indication: EPICONDYLITIS
     Dosage: 15 mg, UNK
     Route: 048
     Dates: start: 20121112

REACTIONS (2)
  - Lower respiratory tract infection [Recovered/Resolved]
  - Malaise [Unknown]
